FAERS Safety Report 16362004 (Version 1)
Quarter: 2019Q2

REPORT INFORMATION
  Report Type: Spontaneous
  Country: US (occurrence: US)
  Receive Date: 20190528
  Receipt Date: 20190528
  Transmission Date: 20190711
  Serious: No
  Sender: FDA-Public Use
  Company Number: US-PFIZER INC-2019226757

PATIENT
  Age: 63 Year
  Sex: Male

DRUGS (2)
  1. NORPACE [Suspect]
     Active Substance: DISOPYRAMIDE PHOSPHATE
     Dosage: 150 MG, UNK(IT EVERY 6 HOURS OR EVERY 8 HOURS)
  2. NORPACE [Suspect]
     Active Substance: DISOPYRAMIDE PHOSPHATE
     Indication: HYPERTROPHIC CARDIOMYOPATHY
     Dosage: 100 MG, UNK(IT EVERY 6 HOURS OR EVERY 8 HOURS)

REACTIONS (1)
  - Drug level fluctuating [Unknown]
